FAERS Safety Report 12631812 (Version 2)
Quarter: 2016Q3

REPORT INFORMATION
  Report Type: Spontaneous
  Country: US (occurrence: US)
  Receive Date: 20160808
  Receipt Date: 20160808
  Transmission Date: 20161109
  Serious: No
  Sender: FDA-Public Use
  Company Number: US-BEH-2016061122

PATIENT
  Sex: Female
  Weight: 81 kg

DRUGS (22)
  1. ACETAMINOPHEN. [Concomitant]
     Active Substance: ACETAMINOPHEN
  2. LIPITOR [Concomitant]
     Active Substance: ATORVASTATIN CALCIUM
  3. FISH OIL [Concomitant]
     Active Substance: FISH OIL
  4. ASPIRIN. [Concomitant]
     Active Substance: ASPIRIN
  5. AMBIEN [Concomitant]
     Active Substance: ZOLPIDEM TARTRATE
  6. HIZENTRA [Suspect]
     Active Substance: HUMAN IMMUNOGLOBULIN G
     Indication: IMMUNODEFICIENCY COMMON VARIABLE
     Route: 058
     Dates: start: 20140721
  7. DYAZIDE [Concomitant]
     Active Substance: HYDROCHLOROTHIAZIDE\TRIAMTERENE
  8. METFORMIN [Concomitant]
     Active Substance: METFORMIN HYDROCHLORIDE
  9. LISINOPRIL. [Concomitant]
     Active Substance: LISINOPRIL
  10. PRILOSEC [Concomitant]
     Active Substance: OMEPRAZOLE MAGNESIUM
  11. DIPHENHYDRAMIN [Concomitant]
     Active Substance: DIPHENHYDRAMINE
  12. LIDOCAINE/PRILOCAINE [Concomitant]
     Active Substance: LIDOCAINE\PRILOCAINE
  13. PREDNISONE. [Concomitant]
     Active Substance: PREDNISONE
  14. LEVOTHYROXINE. [Concomitant]
     Active Substance: LEVOTHYROXINE
  15. EPIPEN [Concomitant]
     Active Substance: EPINEPHRINE
  16. LMX [Concomitant]
     Active Substance: LIDOCAINE
  17. FLONASE [Concomitant]
     Active Substance: FLUTICASONE PROPIONATE
  18. METOPROLOL. [Concomitant]
     Active Substance: METOPROLOL
  19. KLOR-CON [Concomitant]
     Active Substance: POTASSIUM CHLORIDE
  20. VITAMIN B [Concomitant]
     Active Substance: VITAMIN B
  21. NEURONTIN [Concomitant]
     Active Substance: GABAPENTIN
  22. LANTUS [Concomitant]
     Active Substance: INSULIN GLARGINE

REACTIONS (1)
  - Bronchitis [Unknown]
